FAERS Safety Report 8297536-2 (Version None)
Quarter: 2012Q2

REPORT INFORMATION
  Report Type: 
  Country: None (occurrence: None)
  Receive Date: 20120419
  Receipt Date: 20120412
  Transmission Date: 20120825
  Serious: No
  Sender: FDA-Public Use
  Company Number: PHEH2012US007299

PATIENT
  Sex: Female

DRUGS (1)
  1. TASIGNA [Suspect]
     Indication: MYELOID LEUKAEMIA
     Dosage: 400 MG, BID
     Route: 048
     Dates: start: 20090321, end: 20120329

REACTIONS (7)
  - MUSCULOSKELETAL PAIN [None]
  - BONE PAIN [None]
  - INSOMNIA [None]
  - ASTHENIA [None]
  - MUSCLE SPASMS [None]
  - SNEEZING [None]
  - RHINORRHOEA [None]
